FAERS Safety Report 21333464 (Version 1)
Quarter: 2022Q3

REPORT INFORMATION
  Report Type: Spontaneous
  Country: US (occurrence: US)
  Receive Date: 20220914
  Receipt Date: 20220914
  Transmission Date: 20221027
  Serious: No
  Sender: FDA-Public Use
  Company Number: US-ABBVIE-22K-163-4536520-00

PATIENT
  Sex: Male

DRUGS (1)
  1. DEPAKOTE ER [Suspect]
     Active Substance: DIVALPROEX SODIUM
     Indication: Product used for unknown indication
     Route: 048

REACTIONS (9)
  - Balance disorder [Unknown]
  - Fall [Unknown]
  - Fumbling [Unknown]
  - Extra dose administered [Unknown]
  - Muscular weakness [Unknown]
  - Dysgraphia [Unknown]
  - Unevaluable event [Unknown]
  - Tremor [Unknown]
  - Dizziness [Unknown]
